FAERS Safety Report 4429785-5 (Version None)
Quarter: 2004Q3

REPORT INFORMATION
  Report Type: 
  Country: None (occurrence: None)
  Receive Date: 20040817
  Receipt Date: 20040804
  Transmission Date: 20050211
  Serious: Yes (Hospitalization)
  Sender: FDA-Public Use
  Company Number: 2004226591US

PATIENT
  Age: 26 Year
  Sex: Male

DRUGS (5)
  1. DELTASONE (PREDNSONE) TABLET [Suspect]
     Indication: NON-HODGKIN'S LYMPHOMA
     Dates: start: 20040430
  2. CYCLOPHOSPHAMIDE [Suspect]
     Indication: NON-HODGKIN'S LYMPHOMA
     Dosage: 1567 MG, CYCLIC
     Dates: start: 20040430
  3. COMPARATOR-GEMCITABINE) INJECTION [Suspect]
     Indication: NON-HODGKIN'S LYMPHOMA
     Dosage: 1247 MG, CYLIC, IV
     Route: 042
     Dates: start: 20040430, end: 20040502
  4. DOXORUBICIN HYDROCHLORIDE FOR INJECTION (DOXORUBICIN HYDROCHLORIDE) PO [Suspect]
     Indication: NON-HODGKIN'S LYMPHOMA
     Dosage: 100 MG
     Dates: start: 20040430
  5. VINCRISTINE [Suspect]
     Indication: NON-HODGKIN'S LYMPHOMA
     Dosage: 2 MG
     Dates: start: 20040430

REACTIONS (6)
  - FEBRILE NEUTROPENIA [None]
  - HYPOKALAEMIA [None]
  - HYPONATRAEMIA [None]
  - HYPOVOLAEMIA [None]
  - MUCOSAL INFLAMMATION [None]
  - PHARYNGOLARYNGEAL PAIN [None]
